FAERS Safety Report 4699723-9 (Version None)
Quarter: 2005Q2

REPORT INFORMATION
  Report Type: 
  Country: None (occurrence: None)
  Receive Date: 20050623
  Receipt Date: 20050608
  Transmission Date: 20051028
  Serious: Yes (Hospitalization)
  Sender: FDA-Public Use
  Company Number: DSA_26619_2005

PATIENT
  Age: 79 Year
  Sex: Female

DRUGS (2)
  1. ENALAPRIL MALEATE [Suspect]
     Indication: SCLERODERMA RENAL CRISIS
     Dosage: 10 MG Q DAY PO
     Route: 048
     Dates: start: 20041217
  2. TORSEMIDE [Concomitant]

REACTIONS (5)
  - DIALYSIS [None]
  - HAEMOGLOBIN DECREASED [None]
  - MELAENA [None]
  - RENAL ARTERY STENOSIS [None]
  - RENAL ISCHAEMIA [None]
